FAERS Safety Report 26082596 (Version 1)
Quarter: 2025Q4

REPORT INFORMATION
  Report Type: Spontaneous
  Country: US (occurrence: None)
  Receive Date: 20251121
  Receipt Date: 20251121
  Transmission Date: 20260117
  Serious: Yes (Death)
  Sender: FDA-CTU
  Company Number: None

PATIENT
  Age: 78 Year
  Sex: Female

DRUGS (1)
  1. KEVZARA [Suspect]
     Active Substance: SARILUMAB
     Indication: Polymyalgia rheumatica
     Dosage: OTHER QUANTITY : 200 MG / 1.14 ML;?FREQUENCY : EVERY OTHER WEEK;?
     Route: 058
     Dates: start: 20250721, end: 20251121

REACTIONS (1)
  - Cardiac failure congestive [None]
